FAERS Safety Report 4997532-4 (Version None)
Quarter: 2006Q1

REPORT INFORMATION
  Report Type: 
  Country: None (occurrence: None)
  Receive Date: 20060315
  Receipt Date: 20051212
  Transmission Date: 20060701
  Serious: Yes (Other)
  Sender: FDA-Public Use
  Company Number: 428384

PATIENT
  Age: 82 Year
  Sex: Female

DRUGS (2)
  1. BONIVA [Suspect]
     Indication: OSTEOPOROSIS
     Dosage: ORAL
     Route: 048
     Dates: start: 20051114
  2. VITAMIN NOS (VITAMIN NOS) [Concomitant]

REACTIONS (3)
  - NAUSEA [None]
  - PAIN IN EXTREMITY [None]
  - SHOULDER PAIN [None]
